FAERS Safety Report 14954746 (Version 4)
Quarter: 2018Q3

REPORT INFORMATION
  Report Type: Spontaneous
  Country: US (occurrence: US)
  Receive Date: 20180530
  Receipt Date: 20180701
  Transmission Date: 20181010
  Serious: Yes (Hospitalization, Other)
  Sender: FDA-Public Use
  Company Number: PHHY2018US006646

PATIENT
  Age: 28 Year
  Sex: Male

DRUGS (7)
  1. CICLOSPORIN [Suspect]
     Active Substance: CYCLOSPORINE
     Indication: PROPHYLAXIS AGAINST GRAFT VERSUS HOST DISEASE
  2. LAMOTRIGINE. [Suspect]
     Active Substance: LAMOTRIGINE
     Indication: EPILEPSY
     Route: 065
  3. CICLOSPORIN [Suspect]
     Active Substance: CYCLOSPORINE
     Indication: STEM CELL TRANSPLANT
     Dosage: 550 MG, QD
     Route: 065
  4. OXCARBAZEPINE. [Suspect]
     Active Substance: OXCARBAZEPINE
     Indication: EPILEPSY
     Route: 065
  5. LEVETIRACETAM. [Suspect]
     Active Substance: LEVETIRACETAM
     Indication: EPILEPSY
     Route: 065
  6. PHENYTOIN. [Suspect]
     Active Substance: PHENYTOIN
     Indication: EPILEPSY
     Route: 065
  7. PREDNISONE. [Suspect]
     Active Substance: PREDNISONE
     Indication: IMMUNOSUPPRESSANT DRUG THERAPY
     Dosage: UNK
     Route: 065

REACTIONS (14)
  - Gliosis [Unknown]
  - Sinusitis bacterial [Recovered/Resolved]
  - Epilepsy [Recovered/Resolved]
  - Blindness cortical [Unknown]
  - Cerebral atrophy [Unknown]
  - Hippocampal sclerosis [Unknown]
  - Cerebral disorder [Unknown]
  - Neurotoxicity [Unknown]
  - Decreased immune responsiveness [Unknown]
  - Posterior reversible encephalopathy syndrome [Unknown]
  - Graft versus host disease in liver [Unknown]
  - Memory impairment [Unknown]
  - Herpes virus infection [Recovered/Resolved]
  - Drug ineffective [Unknown]
